FAERS Safety Report 20629219 (Version 1)
Quarter: 2022Q1

REPORT INFORMATION
  Report Type: Spontaneous
  Country: CN (occurrence: CN)
  Receive Date: 20220323
  Receipt Date: 20220323
  Transmission Date: 20220423
  Serious: Yes (Hospitalization)
  Sender: FDA-Public Use
  Company Number: CN-PFIZER INC-202200418151

PATIENT
  Age: 15 Year
  Sex: Male
  Weight: 76 kg

DRUGS (6)
  1. CYTARABINE [Suspect]
     Active Substance: CYTARABINE
     Indication: Lymphoma
     Dosage: 350 MG, 2X/DAY
     Route: 041
     Dates: start: 20220221, end: 20220222
  2. CYTARABINE [Suspect]
     Active Substance: CYTARABINE
     Dosage: 35 MG
     Route: 037
     Dates: start: 20220225, end: 20220225
  3. METHOTREXATE [Suspect]
     Active Substance: METHOTREXATE
     Indication: Lymphoma
     Dosage: 12.5 MG, 1X/DAY
     Route: 037
     Dates: start: 20220225, end: 20220225
  4. ETOPOSIDE [Suspect]
     Active Substance: ETOPOSIDE
     Indication: Lymphoma
     Dosage: 180 MG, 1X/DAY
     Route: 041
     Dates: start: 20220224, end: 20220226
  5. VINDESINE SULFATE [Suspect]
     Active Substance: VINDESINE SULFATE
     Indication: Lymphoma
     Dosage: 5.5 MG, 1X/DAY
     Route: 041
     Dates: start: 20220221, end: 20220221
  6. DEXAMETHASONE [Suspect]
     Active Substance: DEXAMETHASONE
     Indication: Lymphoma
     Dosage: 5 MG
     Route: 037
     Dates: start: 20220225, end: 20220225

REACTIONS (6)
  - Myelosuppression [Recovering/Resolving]
  - Nausea [Recovered/Resolved]
  - Vomiting [Recovered/Resolved]
  - Dysphagia [Recovered/Resolved]
  - Pyrexia [Recovered/Resolved]
  - Cough [Recovering/Resolving]

NARRATIVE: CASE EVENT DATE: 20220222
